FAERS Safety Report 8062113-5 (Version None)
Quarter: 2012Q1

REPORT INFORMATION
  Report Type: 
  Country: None (occurrence: None)
  Receive Date: 20120123
  Receipt Date: 20120110
  Transmission Date: 20120608
  Serious: Yes (Hospitalization, Other)
  Sender: FDA-Public Use
  Company Number: US-ELI_LILLY_AND_COMPANY-US201101003121

PATIENT
  Sex: Male
  Weight: 64.58 kg

DRUGS (12)
  1. SOTALOL HCL [Concomitant]
     Indication: HEART RATE ABNORMAL
  2. TIKOSYN [Concomitant]
  3. VITAMIN D [Concomitant]
  4. CLONAZEPAM [Concomitant]
  5. CALCIUM CARBONATE [Concomitant]
  6. CARDIZEM [Concomitant]
  7. DIGOXIN [Concomitant]
  8. FORTEO [Suspect]
     Indication: OSTEOPOROSIS
     Dosage: 20 UG, QD
     Route: 065
  9. SYNTHROID [Concomitant]
  10. SAW PALMETTO [Concomitant]
  11. M.V.I. [Concomitant]
  12. FORTEO [Suspect]
     Dosage: 20 UG, QD
     Route: 065

REACTIONS (6)
  - PERICARDIAL EFFUSION [None]
  - PLEURAL EFFUSION [None]
  - ATRIAL FIBRILLATION [None]
  - INJECTION SITE SWELLING [None]
  - INJECTION SITE PAIN [None]
  - BONE DENSITY DECREASED [None]
